FAERS Safety Report 16129428 (Version 1)
Quarter: 2019Q1

REPORT INFORMATION
  Report Type: Spontaneous
  Country: US (occurrence: US)
  Receive Date: 20190328
  Receipt Date: 20190328
  Transmission Date: 20190418
  Serious: No
  Sender: FDA-Public Use
  Company Number: US-009507513-1903USA012514

PATIENT
  Sex: Female

DRUGS (1)
  1. ASMANEX [Suspect]
     Active Substance: MOMETASONE FUROATE
     Dosage: 2 PUFFS ORALLY TWICE DAILY; ROUTE OF ADMINISTRATION: ORAL INHALATION
     Route: 048

REACTIONS (3)
  - Inappropriate schedule of product administration [Unknown]
  - Product quality issue [Unknown]
  - No adverse event [Unknown]
